FAERS Safety Report 10153990 (Version 1)
Quarter: 2014Q2

REPORT INFORMATION
  Report Type: Spontaneous
  Country: US (occurrence: US)
  Receive Date: 20140506
  Receipt Date: 20140506
  Transmission Date: 20141212
  Serious: No
  Sender: FDA-Public Use
  Company Number: US-SHIRE-US201401849

PATIENT
  Age: 44 Year
  Sex: Female
  Weight: 61.22 kg

DRUGS (6)
  1. LIALDA [Suspect]
     Indication: COLITIS ULCERATIVE
     Dosage: 3.6 G, 1X/DAY:QD
     Route: 048
     Dates: start: 201403, end: 201404
  2. LIALDA [Suspect]
     Dosage: 2.4 G, 1X/DAY:QD
     Route: 048
  3. LIALDA [Suspect]
     Dosage: 3.6 G, 1X/DAY:QD
     Route: 048
     Dates: start: 2012
  4. BENTYL [Concomitant]
     Indication: ABDOMINAL PAIN UPPER
     Dosage: 20 MG, 1X/DAY:QD
     Route: 048
     Dates: start: 2009
  5. IMODIUM [Concomitant]
     Indication: PRODUCT USED FOR UNKNOWN INDICATION
     Dosage: UNK, UNKNOWN
     Route: 048
  6. CYMBALTA [Concomitant]
     Indication: ANXIETY
     Dosage: 30 MG, 2X/DAY:BID
     Route: 048
     Dates: start: 2009

REACTIONS (1)
  - Colitis ulcerative [Not Recovered/Not Resolved]
